FAERS Safety Report 17805129 (Version 7)
Quarter: 2020Q3

REPORT INFORMATION
  Report Type: Report from Study
  Country: None (occurrence: ES)
  Receive Date: 20200520
  Receipt Date: 20200818
  Transmission Date: 20201102
  Serious: Yes (Other)
  Sender: FDA-Public Use
  Company Number: ES-ABBVIE-20K-144-3370376-00

PATIENT
  Age: 72 Year
  Sex: Male
  Weight: 60 kg

DRUGS (5)
  1. DUODOPA [Suspect]
     Active Substance: CARBIDOPA\LEVODOPA
     Dosage: CONTINUOUS DOSE DECREASED BY 0.2ML/H (2.9ML/H)
     Route: 050
     Dates: start: 202004, end: 2020
  2. SINEMET PLUS [Concomitant]
     Active Substance: CARBIDOPA\LEVODOPA
     Indication: PARKINSON^S DISEASE
     Dosage: NIGHT
     Route: 048
     Dates: start: 20200511
  3. TRAZODONE [Concomitant]
     Active Substance: TRAZODONE HYDROCHLORIDE
     Indication: PRODUCT USED FOR UNKNOWN INDICATION
     Dosage: AT NIGHT
  4. DUODOPA [Suspect]
     Active Substance: CARBIDOPA\LEVODOPA
     Dosage: REINTRODUCE EXTRA DOSES TO 3ML AND WITH A 22H BLOCK
     Route: 050
     Dates: start: 2020
  5. DUODOPA [Suspect]
     Active Substance: CARBIDOPA\LEVODOPA
     Indication: PARKINSON^S DISEASE
     Route: 050
     Dates: start: 20181010, end: 202004

REACTIONS (24)
  - Nervousness [Recovered/Resolved]
  - Defiant behaviour [Recovered/Resolved]
  - Hostility [Recovered/Resolved]
  - Condition aggravated [Recovered/Resolved]
  - Delusion [Recovered/Resolved]
  - Disorientation [Recovering/Resolving]
  - Drug ineffective [Unknown]
  - Restlessness [Recovering/Resolving]
  - On and off phenomenon [Unknown]
  - Aggression [Recovered/Resolved]
  - Parkinsonism [Unknown]
  - Tremor [Not Recovered/Not Resolved]
  - Somnolence [Not Recovered/Not Resolved]
  - Aggression [Recovered/Resolved]
  - Disorientation [Recovered/Resolved]
  - Agitation [Recovered/Resolved]
  - Unevaluable event [Recovering/Resolving]
  - Aggression [Recovered/Resolved]
  - Intentional product misuse [Unknown]
  - Dysuria [Recovering/Resolving]
  - Neuropsychiatric symptoms [Recovered/Resolved]
  - Insomnia [Recovered/Resolved]
  - Nervousness [Recovered/Resolved]
  - Delusion [Recovered/Resolved]

NARRATIVE: CASE EVENT DATE: 2020
